FAERS Safety Report 11159718 (Version 1)
Quarter: 2015Q2

REPORT INFORMATION
  Report Type: Spontaneous
  Country: US (occurrence: US)
  Receive Date: 20150603
  Receipt Date: 20150603
  Transmission Date: 20150821
  Serious: No
  Sender: FDA-Public Use
  Company Number: US-PFIZER INC-2015182566

PATIENT
  Age: 63 Year
  Sex: Female
  Weight: 49 kg

DRUGS (1)
  1. LYRICA [Suspect]
     Active Substance: PREGABALIN
     Indication: FIBROMYALGIA
     Dosage: 200 MG, 3X/DAY

REACTIONS (3)
  - Bronchitis [Unknown]
  - Speech disorder [Unknown]
  - Cough [Unknown]

NARRATIVE: CASE EVENT DATE: 201505
